FAERS Safety Report 9676055 (Version 1)
Quarter: 2013Q4

REPORT INFORMATION
  Report Type: Report from Study
  Country: AR (occurrence: AR)
  Receive Date: 20131107
  Receipt Date: 20131107
  Transmission Date: 20140711
  Serious: Yes (Hospitalization)
  Sender: FDA-Public Use
  Company Number: PHHY2013AR126540

PATIENT
  Age: 81 Year
  Sex: Female

DRUGS (1)
  1. EXFORGE [Suspect]
     Dosage: 1 DF, (160/10 MG)

REACTIONS (2)
  - Arthritis [Unknown]
  - Pain in extremity [Recovered/Resolved]
